FAERS Safety Report 18258039 (Version 1)
Quarter: 2020Q3

REPORT INFORMATION
  Report Type: Spontaneous
  Country: US (occurrence: US)
  Receive Date: 20200911
  Receipt Date: 20200911
  Transmission Date: 20201103
  Serious: No
  Sender: FDA-Public Use
  Company Number: US-ASTRAZENECA-2020SF13370

PATIENT
  Sex: Male

DRUGS (2)
  1. BRILINTA [Suspect]
     Active Substance: TICAGRELOR
     Indication: MYOCARDIAL INFARCTION
     Route: 048
     Dates: start: 20200815
  2. LASIX [Concomitant]
     Active Substance: FUROSEMIDE
     Dates: start: 2018

REACTIONS (5)
  - Gout [Not Recovered/Not Resolved]
  - Diarrhoea [Unknown]
  - Dyspnoea [Unknown]
  - Cough [Not Recovered/Not Resolved]
  - SARS-CoV-2 test negative [Unknown]
